FAERS Safety Report 6057256-1 (Version None)
Quarter: 2009Q1

REPORT INFORMATION
  Report Type: 
  Country: None (occurrence: None)
  Receive Date: 20090129
  Receipt Date: 20080606
  Transmission Date: 20090719
  Serious: No
  Sender: FDA-Public Use
  Company Number: A0732747A

PATIENT
  Sex: Male

DRUGS (1)
  1. WELLBUTRIN [Suspect]
     Dosage: 150MG UNKNOWN
     Route: 048
     Dates: start: 20000101

REACTIONS (2)
  - DRUG INEFFECTIVE [None]
  - TOBACCO ABUSE [None]
